FAERS Safety Report 9231295 (Version 4)
Quarter: 2013Q2

REPORT INFORMATION
  Report Type: Spontaneous
  Country: JP (occurrence: JP)
  Receive Date: 20130415
  Receipt Date: 20130617
  Transmission Date: 20140414
  Serious: Yes (Hospitalization, Other)
  Sender: FDA-Public Use
  Company Number: JP-PFIZER INC-2013116240

PATIENT
  Age: 86 Year
  Sex: Female

DRUGS (20)
  1. LYRICA [Suspect]
     Dosage: 25 MG, 2X/DAY
     Route: 048
     Dates: start: 20120817, end: 20120909
  2. LYRICA [Suspect]
     Dosage: 75 MG, 2X/DAY
     Route: 048
     Dates: start: 20120910, end: 20130221
  3. LYRICA [Suspect]
     Dosage: 150 MG, 2X/DAY
     Route: 048
     Dates: start: 20130222
  4. LYRICA [Suspect]
     Dosage: 150 MG, 2X/DAY
     Route: 048
     Dates: start: 20130408, end: 20130410
  5. CELECOX [Concomitant]
     Dosage: 100 MG, 2X/DAY
     Route: 048
     Dates: start: 20120817
  6. BAYASPIRIN [Concomitant]
     Dosage: 100 MG, 1X/DAY
     Route: 048
     Dates: start: 20120817
  7. TAKEPRON OD [Concomitant]
     Dosage: 15 MG, 1X/DAY
     Route: 048
     Dates: start: 20120817
  8. MAGLAX [Concomitant]
     Dosage: 990 MG, 3X/DAY
     Route: 048
     Dates: start: 20120817
  9. SECTOR [Concomitant]
     Dosage: UNK
     Dates: start: 20120817
  10. DETRUSITOL [Concomitant]
     Dosage: 4 DF, 1X/DAY
     Route: 048
     Dates: start: 20121214
  11. MOHRUS [Concomitant]
     Dosage: 40 MG, 1X/DAY
     Route: 061
     Dates: start: 20121214
  12. REZALTAS [Concomitant]
     Dosage: UNK
     Route: 048
     Dates: start: 20121214
  13. FLUITRAN [Concomitant]
     Dosage: 1 DF, 1X/DAY
     Route: 048
     Dates: start: 20121127
  14. LASIX [Concomitant]
     Dosage: 20 MG, 1X/DAY
     Route: 048
     Dates: start: 20121127
  15. HALCION [Concomitant]
     Dosage: 0.25 MG, 1X/DAY
     Route: 048
     Dates: start: 20121214
  16. SPIRONOLACTONE [Concomitant]
     Dosage: 25 MG, 1X/DAY
     Route: 048
     Dates: start: 20121127
  17. AMLODIPINE [Concomitant]
     Dosage: 5 MG, 1X/DAY
     Route: 048
     Dates: start: 20121225
  18. ELCITONIN [Concomitant]
     Dosage: 20 G, 2X/WEEK
     Route: 058
     Dates: start: 20120817
  19. NEUROTROPIN [Concomitant]
     Dosage: 3.6 IU, UNK
     Dates: start: 20120817
  20. RINDERON [Concomitant]
     Dosage: 4 MG, UNK
     Dates: start: 20120817

REACTIONS (7)
  - Loss of consciousness [Recovered/Resolved]
  - Hyperkalaemia [Recovered/Resolved]
  - Altered state of consciousness [Recovered/Resolved]
  - Sinus arrest [Unknown]
  - Cardiac failure [Recovering/Resolving]
  - Somnolence [Recovering/Resolving]
  - Dizziness [Recovering/Resolving]
